FAERS Safety Report 12218758 (Version 4)
Quarter: 2016Q2

REPORT INFORMATION
  Report Type: Spontaneous
  Country: US (occurrence: US)
  Receive Date: 20160329
  Receipt Date: 20160510
  Transmission Date: 20160815
  Serious: Yes (Other)
  Sender: FDA-Public Use
  Company Number: US-MDT-ADR-2016-00579

PATIENT
  Age: 52 Year
  Sex: Female

DRUGS (14)
  1. ASPIRIN. [Suspect]
     Active Substance: ASPIRIN
     Dosage: 1 TABLET EVERY DAY
     Route: 048
  2. SPIRIVA [Suspect]
     Active Substance: TIOTROPIUM BROMIDE MONOHYDRATE
     Dosage: 1 CAPSULE BY INHALATION EVERY DAY
     Route: 055
  3. TOPAMAX [Suspect]
     Active Substance: TOPIRAMATE
     Dosage: 1 TABLET TWICE DAILY
     Route: 048
  4. GABAPENTIN. [Suspect]
     Active Substance: GABAPENTIN
     Dosage: 1 CAPSULE 2 TIMES EVERY DAY
     Route: 048
  5. PROTONIX [Suspect]
     Active Substance: PANTOPRAZOLE SODIUM
     Dosage: 1 TABLET EVERY DAY
     Route: 048
  6. HUMALOG [Suspect]
     Active Substance: INSULIN LISPRO
     Dosage: INJECT PER PRESCRIBER^S INSTRUCTIONS
     Route: 058
  7. METOPROLOL SUCCINATE. [Suspect]
     Active Substance: METOPROLOL SUCCINATE
     Dosage: 1 TABLET EVERY DAY
     Route: 048
  8. NORTRIPTYLIN HCL [Suspect]
     Active Substance: NORTRIPTYLINE HYDROCHLORIDE
     Dosage: 1 CAPSULE EVERY DAY
     Route: 048
  9. PRAMIPEXOLE DIHYDROCHLORIDE. [Suspect]
     Active Substance: PRAMIPEXOLE DIHYDROCHLORIDE
     Dosage: 1 TABLET (0.25MG) 2 TIMES EVERY DAY
     Route: 048
  10. NITROSTAT [Suspect]
     Active Substance: NITROGLYCERIN
     Dosage: 1 TABLET (0.4MG) AS DIRECTED
     Route: 060
  11. BACLOFEN, UNKNOWN [Suspect]
     Active Substance: BACLOFEN
     Dosage: 25MCG/DAY
  12. EFFIENT [Suspect]
     Active Substance: PRASUGREL HYDROCHLORIDE
     Dosage: 1 TABLET EVERY DAY
     Route: 048
  13. CRESTOR [Suspect]
     Active Substance: ROSUVASTATIN CALCIUM
     Dosage: 1 TABLET EVERY DAY
     Route: 048
  14. PROVENTIL HFA [Suspect]
     Active Substance: ALBUTEROL SULFATE
     Dosage: 2 PUFFS EVERY 4-6 HOURS AS NEEDED
     Route: 055

REACTIONS (4)
  - Infusion site mass [Recovered/Resolved]
  - Myopathy [Unknown]
  - Muscular weakness [Recovered/Resolved]
  - Diabetic neuropathy [Unknown]

NARRATIVE: CASE EVENT DATE: 201510
